FAERS Safety Report 17186545 (Version 2)
Quarter: 2019Q4

REPORT INFORMATION
  Report Type: Spontaneous
  Country: JP (occurrence: JP)
  Receive Date: 20191220
  Receipt Date: 20191227
  Transmission Date: 20200122
  Serious: Yes (Death, Other)
  Sender: FDA-Public Use
  Company Number: JP-ABBVIE-19P-087-3205212-00

PATIENT
  Sex: Male

DRUGS (1)
  1. LEUPLIN [Suspect]
     Active Substance: LEUPROLIDE ACETATE
     Indication: PROSTATE CANCER
     Dosage: 24 MILLIGRAM, Q6MONTHS
     Route: 050

REACTIONS (1)
  - Neoplasm malignant [Fatal]
